FAERS Safety Report 24093122 (Version 1)
Quarter: 2024Q3

REPORT INFORMATION
  Report Type: Report from Study
  Country: IN (occurrence: IN)
  Receive Date: 20240715
  Receipt Date: 20240715
  Transmission Date: 20241017
  Serious: Yes (Hospitalization)
  Sender: INCYTE
  Company Number: IN-002147023-NVSC2024IN004286

PATIENT

DRUGS (2)
  1. RUXOLITINIB [Suspect]
     Active Substance: RUXOLITINIB
     Indication: Primary myelofibrosis
     Dosage: 20 MG, BID
     Route: 048
     Dates: start: 20211209
  2. RUXOLITINIB [Suspect]
     Active Substance: RUXOLITINIB
     Indication: Janus kinase 2 mutation

REACTIONS (20)
  - Pain [Unknown]
  - Bone pain [Unknown]
  - Dysuria [Unknown]
  - Chills [Unknown]
  - Cough [Unknown]
  - Hypoacusis [Unknown]
  - Dyspnoea exertional [Unknown]
  - Pyrexia [Unknown]
  - Asthenia [Unknown]
  - Dizziness [Unknown]
  - Hepatitis B surface antigen positive [Unknown]
  - Headache [Unknown]
  - Lymphadenopathy [Unknown]
  - Retroperitoneal lymphadenopathy [Unknown]
  - Nausea [Unknown]
  - Abdominal pain [Unknown]
  - Vasodilatation [Unknown]
  - Urinary tract infection [Unknown]
  - Vomiting [Unknown]
  - Haemoglobin decreased [Unknown]

NARRATIVE: CASE EVENT DATE: 20230726
